FAERS Safety Report 6249713-X (Version None)
Quarter: 2009Q2

REPORT INFORMATION
  Report Type: 
  Country: None (occurrence: None)
  Receive Date: 20090629
  Receipt Date: 20090619
  Transmission Date: 20091009
  Serious: Yes (Other)
  Sender: FDA-Public Use
  Company Number: US-BRISTOL-MYERS SQUIBB COMPANY-14672265

PATIENT
  Age: 57 Year
  Sex: Female

DRUGS (2)
  1. ABILIFY [Suspect]
     Indication: DISSOCIATIVE IDENTITY DISORDER
  2. ABILIFY [Suspect]
     Indication: DEPRESSION

REACTIONS (1)
  - NEOPLASM MALIGNANT [None]
